FAERS Safety Report 12718170 (Version 6)
Quarter: 2017Q2

REPORT INFORMATION
  Report Type: Report from Study
  Country: CA (occurrence: CA)
  Receive Date: 20160906
  Receipt Date: 20170419
  Transmission Date: 20170830
  Serious: Yes (Hospitalization)
  Sender: FDA-Public Use
  Company Number: CA-JNJFOC-20160827718

PATIENT
  Age: 63 Year
  Sex: Female
  Weight: 20.68 kg

DRUGS (2)
  1. STELARA [Suspect]
     Active Substance: USTEKINUMAB
     Indication: PSORIASIS
     Route: 058
     Dates: start: 200603, end: 201011
  2. STELARA [Suspect]
     Active Substance: USTEKINUMAB
     Indication: PSORIASIS
     Route: 058
     Dates: start: 20110621

REACTIONS (2)
  - Pneumonia [Recovered/Resolved]
  - Burnout syndrome [Unknown]

NARRATIVE: CASE EVENT DATE: 20160801
